FAERS Safety Report 17026986 (Version 2)
Quarter: 2019Q4

REPORT INFORMATION
  Report Type: Report from Study
  Country: CA (occurrence: CA)
  Receive Date: 20191113
  Receipt Date: 20191125
  Transmission Date: 20200122
  Serious: Yes (Other)
  Sender: FDA-Public Use
  Company Number: NVSC2018CA000469

PATIENT
  Age: 75 Year
  Sex: Female

DRUGS (1)
  1. COSENTYX [Suspect]
     Active Substance: SECUKINUMAB
     Indication: PSORIASIS
     Dosage: 300 MG
     Route: 058
     Dates: end: 20190522

REACTIONS (2)
  - Diverticulitis [Recovered/Resolved]
  - Pruritus [Not Recovered/Not Resolved]

NARRATIVE: CASE EVENT DATE: 20180804
